FAERS Safety Report 19731429 (Version 1)
Quarter: 2021Q3

REPORT INFORMATION
  Report Type: Spontaneous
  Country: US (occurrence: US)
  Receive Date: 20210820
  Receipt Date: 20210820
  Transmission Date: 20211014
  Serious: No
  Sender: FDA-Public Use
  Company Number: US-MYLANLABS-2021M1042422

PATIENT
  Age: 18 Year
  Sex: Female
  Weight: 80 kg

DRUGS (1)
  1. XULANE [Suspect]
     Active Substance: ETHINYL ESTRADIOL\NORELGESTROMIN
     Indication: CONTRACEPTION
     Dosage: 150/35 MICROGRAM,QD,CHANGE PATCH AFTER 7 DAYS. NO PATCH WEE FOUR
     Route: 062

REACTIONS (2)
  - Product leakage [Unknown]
  - Wrong technique in product usage process [Unknown]

NARRATIVE: CASE EVENT DATE: 20210711
